FAERS Safety Report 21046162 (Version 2)
Quarter: 2022Q3

REPORT INFORMATION
  Report Type: Spontaneous
  Country: US (occurrence: US)
  Receive Date: 20220706
  Receipt Date: 20220715
  Transmission Date: 20221026
  Serious: No
  Sender: FDA-Public Use
  Company Number: US-JNJFOC-20220660658

PATIENT
  Age: 45 Year
  Sex: Male

DRUGS (2)
  1. REMICADE [Suspect]
     Active Substance: INFLIXIMAB
     Indication: Mesenteric panniculitis
     Route: 041
  2. PREDNISONE [Concomitant]
     Active Substance: PREDNISONE
     Dosage: WAS LOWERED BELOW 20 MG, PREDNISONE DOSAGE RANGED FROM 15 TO 30 MG DAILY DURING THIS CHEMOTHERAPY PE

REACTIONS (1)
  - Off label use [Unknown]
